FAERS Safety Report 13259025 (Version 1)
Quarter: 2017Q1

REPORT INFORMATION
  Report Type: Spontaneous
  Country: US (occurrence: US)
  Receive Date: 20170222
  Receipt Date: 20170222
  Transmission Date: 20170428
  Serious: Yes (Other)
  Sender: FDA-Public Use
  Company Number: US-RECKITT BENCKISER HEALTHCARE INT LIMITED-RB-82078-2017

PATIENT
  Age: 53 Year
  Sex: Male

DRUGS (1)
  1. MUCINEX DM [Suspect]
     Active Substance: DEXTROMETHORPHAN HYDROBROMIDE\GUAIFENESIN
     Indication: PRODUCT USED FOR UNKNOWN INDICATION
     Dosage: 600 MG, QD
     Route: 065
     Dates: start: 20170210, end: 20170211

REACTIONS (6)
  - Loss of consciousness [Unknown]
  - Syncope [Recovered/Resolved]
  - Musculoskeletal stiffness [Recovered/Resolved]
  - Fall [Recovered/Resolved]
  - Cough [Unknown]
  - Feeling abnormal [Recovered/Resolved]

NARRATIVE: CASE EVENT DATE: 201702
